FAERS Safety Report 6020655-8 (Version None)
Quarter: 2008Q4

REPORT INFORMATION
  Report Type: 
  Country: None (occurrence: None)
  Receive Date: 20081224
  Receipt Date: 20081224
  Transmission Date: 20090506
  Serious: No
  Sender: FDA-Public Use
  Company Number: None

PATIENT
  Sex: Male
  Weight: 90.7194 kg

DRUGS (1)
  1. ABILIFY [Suspect]
     Indication: POST-TRAUMATIC STRESS DISORDER
     Dosage: 5 MG 1 X DAY ORAL
     Route: 048
     Dates: start: 20081115

REACTIONS (3)
  - SEDATION [None]
  - SOMNOLENCE [None]
  - VISION BLURRED [None]
